FAERS Safety Report 12598891 (Version 1)
Quarter: 2016Q3

REPORT INFORMATION
  Report Type: Spontaneous
  Country: US (occurrence: US)
  Receive Date: 20160726
  Receipt Date: 20160726
  Transmission Date: 20161109
  Serious: No
  Sender: FDA-Public Use
  Company Number: US-009507513-1607USA010480

PATIENT
  Sex: Female
  Weight: 52.61 kg

DRUGS (2)
  1. NEXPLANON [Suspect]
     Active Substance: ETONOGESTREL
     Dosage: ONE INSERTION/3 YEARS
     Route: 059
     Dates: start: 20160721, end: 20160721
  2. NEXPLANON [Suspect]
     Active Substance: ETONOGESTREL
     Dosage: ONE INSERTION/3 YEARS
     Route: 059
     Dates: start: 20160721

REACTIONS (3)
  - Product quality issue [Unknown]
  - Complication of device insertion [Recovered/Resolved]
  - No adverse event [Unknown]

NARRATIVE: CASE EVENT DATE: 20160721
